FAERS Safety Report 17206748 (Version 1)
Quarter: 2019Q4

REPORT INFORMATION
  Report Type: Spontaneous
  Country: DE (occurrence: DE)
  Receive Date: 20191227
  Receipt Date: 20191227
  Transmission Date: 20200122
  Serious: Yes (Hospitalization)
  Sender: FDA-Public Use
  Company Number: DE-TEVA-2019-DE-1157737

PATIENT
  Age: 55 Year
  Sex: Female

DRUGS (2)
  1. MYLEPSINUM [Suspect]
     Active Substance: PRIMIDONE
     Indication: EPILEPSY
     Dosage: TAKEN FOR MORE THAN 25 YEARS, FIRST 1500 MG, THEN 125 MG
     Route: 048
  2. LAFAMME 2/2 MG [Concomitant]

REACTIONS (13)
  - Anaemia [Recovered/Resolved]
  - Speech disorder [Recovered/Resolved]
  - Drug hypersensitivity [Recovered/Resolved]
  - Circulatory collapse [Recovered/Resolved]
  - Personality change [Recovered/Resolved]
  - Staring [Recovered/Resolved]
  - Visual impairment [Recovered/Resolved]
  - Tremor [Recovered/Resolved]
  - Rash pruritic [Not Recovered/Not Resolved]
  - Dizziness [Recovered/Resolved]
  - Aggression [Recovered/Resolved]
  - Coagulopathy [Recovered/Resolved]
  - Photosensitivity reaction [Recovered/Resolved]

NARRATIVE: CASE EVENT DATE: 20191127
